FAERS Safety Report 6217220-6 (Version None)
Quarter: 2009Q2

REPORT INFORMATION
  Report Type: 
  Country: None (occurrence: None)
  Receive Date: 20090608
  Receipt Date: 20090525
  Transmission Date: 20091009
  Serious: Yes (Hospitalization, Other)
  Sender: FDA-Public Use
  Company Number: FR-PFIZER INC-2009201501

PATIENT
  Age: 59 Year

DRUGS (4)
  1. CHAMPIX [Suspect]
     Dosage: 1 MG, 2X/DAY
     Route: 048
     Dates: start: 20090304, end: 20090316
  2. ASPIRIN [Suspect]
     Dosage: 325 MG, 1X/DAY
     Route: 048
  3. ISOPTIN - SLOW RELEASE [Concomitant]
     Dosage: 240 MG, 1X/DAY
     Route: 048
  4. ODRIK [Concomitant]
     Dosage: 4 MG, 1X/DAY
     Route: 048

REACTIONS (2)
  - ANAEMIA [None]
  - ULCER HAEMORRHAGE [None]
